FAERS Safety Report 19744425 (Version 1)
Quarter: 2021Q3

REPORT INFORMATION
  Report Type: Spontaneous
  Country: US (occurrence: US)
  Receive Date: 20210823
  Receipt Date: 20210823
  Transmission Date: 20211014
  Serious: Yes (Death)
  Sender: FDA-Public Use
  Company Number: None

PATIENT
  Sex: Male

DRUGS (1)
  1. ADVATE [Suspect]
     Active Substance: ANTIHEMOPHILIC FACTOR, HUMAN RECOMBINANT
     Indication: FACTOR VII DEFICIENCY
     Dosage: ?OTHER STRENGTH:3000UNIT;OTHER DOSE:2590UNITS; THREE TIMES WEEKLY  SLOW IV PUSH?
     Route: 042
     Dates: start: 20120919, end: 202104

REACTIONS (1)
  - Cardiac failure [None]
